FAERS Safety Report 8596447-2 (Version None)
Quarter: 2012Q3

REPORT INFORMATION
  Report Type: 
  Country: None (occurrence: None)
  Receive Date: 20120806
  Receipt Date: 20120806
  Transmission Date: 20120928
  Serious: Yes (Other)
  Sender: FDA-Public Use
  Company Number: None

PATIENT
  Sex: Male

DRUGS (1)
  1. NEURONTIN [Suspect]
     Indication: MUSCLE SPASMS
     Dosage: 300 MG ONCE A NIGHT PO
     Route: 048
     Dates: start: 20120802

REACTIONS (2)
  - DIZZINESS [None]
  - SWOLLEN TONGUE [None]
